FAERS Safety Report 5119966-X (Version None)
Quarter: 2006Q3

REPORT INFORMATION
  Report Type: 
  Country: None (occurrence: None)
  Receive Date: 20060929
  Receipt Date: 20060919
  Transmission Date: 20061208
  Serious: Yes (Other)
  Sender: FDA-Public Use
  Company Number: 2006100234

PATIENT
  Sex: Male

DRUGS (4)
  1. CABERGOLINE [Suspect]
     Indication: PARKINSON'S DISEASE
     Dosage: 2 MG (2 MG, 1 IN 1 D), ORAL
     Route: 048
  2. SINEMET [Suspect]
     Dosage: ORAL
     Route: 048
  3. TRIHEXYPHENIDYL HCL [Suspect]
     Dosage: ORAL
     Route: 048
  4. AMANTADINE HCL [Suspect]
     Dosage: ORAL
     Route: 048

REACTIONS (1)
  - PLATELET COUNT DECREASED [None]
